FAERS Safety Report 19222660 (Version 1)
Quarter: 2021Q2

REPORT INFORMATION
  Report Type: Spontaneous
  Country: DE (occurrence: DE)
  Receive Date: 20210506
  Receipt Date: 20210506
  Transmission Date: 20210717
  Serious: Yes (Hospitalization)
  Sender: FDA-Public Use
  Company Number: DE-ACCORD-224503

PATIENT
  Age: 14 Month
  Sex: Male
  Weight: 12 kg

DRUGS (1)
  1. RAMIPRIL. [Suspect]
     Active Substance: RAMIPRIL
     Route: 048
     Dates: start: 20190210, end: 20190210

REACTIONS (5)
  - Medication error [Unknown]
  - Cardiac murmur [Unknown]
  - Product administration error [Unknown]
  - Accidental exposure to product by child [Unknown]
  - Toxicity to various agents [Unknown]

NARRATIVE: CASE EVENT DATE: 20190210
